FAERS Safety Report 7420370-X (Version None)
Quarter: 2011Q2

REPORT INFORMATION
  Report Type: 
  Country: None (occurrence: None)
  Receive Date: 20110418
  Receipt Date: 20110408
  Transmission Date: 20111010
  Serious: Yes (Hospitalization, Other)
  Sender: FDA-Public Use
  Company Number: DE-TEVA-275464GER

PATIENT
  Sex: Female
  Weight: 75 kg

DRUGS (4)
  1. TRIMIPRAMINE MALEATE [Suspect]
     Indication: DEPRESSION
     Dosage: 100 [MG/D (TO 50) ]
     Route: 048
     Dates: start: 20091122, end: 20100315
  2. VENLAFAXINE HCL [Suspect]
     Indication: DEPRESSION
     Dosage: 150 MILLIGRAM;
     Route: 048
     Dates: start: 20091122, end: 20100315
  3. SEROQUEL [Suspect]
     Indication: DEPRESSION
     Dosage: 125 [MG/D (BIS 100) ]
     Route: 048
     Dates: start: 20100126, end: 20100315
  4. IMPFSTOFF GRIPPE (SEASONAL) [Concomitant]
     Indication: IMMUNISATION
     Route: 030

REACTIONS (2)
  - DRUG EXPOSURE DURING PREGNANCY [None]
  - ABORTION SPONTANEOUS [None]
